FAERS Safety Report 6026566-6 (Version None)
Quarter: 2009Q1

REPORT INFORMATION
  Report Type: 
  Country: None (occurrence: None)
  Receive Date: 20090102
  Receipt Date: 20081231
  Transmission Date: 20090719
  Serious: Yes (Hospitalization, Other)
  Sender: FDA-Public Use
  Company Number: US-ABBOTT-08P-163-0495441-00

PATIENT
  Sex: Female
  Weight: 11.35 kg

DRUGS (2)
  1. OMNICEF [Suspect]
     Indication: PHARYNGITIS STREPTOCOCCAL
     Dates: start: 20080301, end: 20080301
  2. OMNICEF [Suspect]
     Indication: PNEUMONIA
     Dates: start: 20081218, end: 20081228

REACTIONS (5)
  - FEBRILE CONVULSION [None]
  - PIGMENTATION DISORDER [None]
  - PYREXIA [None]
  - SWELLING [None]
  - URTICARIA [None]
